FAERS Safety Report 22607651 (Version 1)
Quarter: 2023Q2

REPORT INFORMATION
  Report Type: Spontaneous
  Country: US (occurrence: US)
  Receive Date: 20230616
  Receipt Date: 20230616
  Transmission Date: 20230721
  Serious: No
  Sender: FDA-Public Use
  Company Number: US-APOTEX-2023AP007148

PATIENT
  Sex: Female

DRUGS (6)
  1. CLOPIDOGREL [Suspect]
     Active Substance: CLOPIDOGREL BISULFATE
     Indication: Product used for unknown indication
     Dosage: 1 DOSAGE FORM, Q.AM (1 TABLET IN THE MORNING)
     Route: 065
     Dates: start: 202207
  2. ASPIRIN [Concomitant]
     Active Substance: ASPIRIN
     Indication: Product used for unknown indication
     Dosage: UNK
     Route: 065
  3. LIPITOR [Concomitant]
     Active Substance: ATORVASTATIN CALCIUM
     Indication: Product used for unknown indication
     Dosage: UNK UNK, Q. AF
     Route: 065
  4. METOPROLOL [Concomitant]
     Active Substance: METOPROLOL
     Indication: Product used for unknown indication
     Dosage: UNK UNK, Q. AF
     Route: 065
  5. ATORVASTATIN [Concomitant]
     Active Substance: ATORVASTATIN
     Indication: Product used for unknown indication
     Dosage: UNK UNK, Q. AF
     Route: 065
  6. EZETIMIBE [Concomitant]
     Active Substance: EZETIMIBE
     Indication: Product used for unknown indication
     Dosage: 1 DOSAGE FORM, Q. AF (1 TABLET EACH IN THE AFTERNOON.)
     Route: 065

REACTIONS (9)
  - Alopecia [Unknown]
  - Fatigue [Unknown]
  - Asthenia [Unknown]
  - Pallor [Unknown]
  - Wound [Unknown]
  - Weight decreased [Unknown]
  - Visual impairment [Unknown]
  - Contusion [Unknown]
  - Wound haemorrhage [Unknown]
